FAERS Safety Report 8103448-7 (Version None)
Quarter: 2012Q1

REPORT INFORMATION
  Report Type: 
  Country: None (occurrence: None)
  Receive Date: 20120201
  Receipt Date: 20120120
  Transmission Date: 20120608
  Serious: Yes (Other)
  Sender: FDA-Public Use
  Company Number: PHEH2012US000637

PATIENT
  Sex: Female

DRUGS (8)
  1. XOLAIR [Suspect]
  2. SPIRIVA [Concomitant]
  3. OXYGEN [Concomitant]
  4. TOBI [Suspect]
     Indication: PSEUDOMONAS BRONCHITIS
     Dosage: 300 MG, BID
     Dates: start: 20111201
  5. ALBUTEROL [Concomitant]
  6. TOBI [Suspect]
     Dosage: 300 MG, BID
     Dates: start: 20111230
  7. MUCINEX [Concomitant]
  8. ADVAIR DISKUS 100/50 [Concomitant]

REACTIONS (4)
  - BRONCHITIS [None]
  - COUGH [None]
  - DYSPNOEA [None]
  - FEELING COLD [None]
